FAERS Safety Report 5391933-0 (Version None)
Quarter: 2007Q3

REPORT INFORMATION
  Report Type: 
  Country: None (occurrence: None)
  Receive Date: 20070720
  Receipt Date: 20070713
  Transmission Date: 20080115
  Serious: Yes (Other)
  Sender: FDA-Public Use
  Company Number: PHBS2007BR11922

PATIENT
  Age: 67 Year
  Sex: Female

DRUGS (4)
  1. FORADIL [Suspect]
     Indication: LUNG DISORDER
     Dosage: 1 DF, Q12H
  2. MIFLASONA [Concomitant]
     Indication: CARDIAC DISORDER
     Dosage: 2 TAB/DAY
     Route: 048
  3. ALDOMET [Concomitant]
     Indication: BLOOD PRESSURE ABNORMAL
     Dosage: 1 TAB/DAY
     Route: 048
  4. INOX [Concomitant]
     Indication: OSTEOPOROSIS
     Dosage: 1 TAB/DAY
     Route: 048

REACTIONS (6)
  - COUGH [None]
  - DRUG DEPENDENCE [None]
  - FATIGUE [None]
  - HYPERSENSITIVITY [None]
  - PHARMACEUTICAL PRODUCT COMPLAINT [None]
  - THROAT IRRITATION [None]
